FAERS Safety Report 4433608-8 (Version None)
Quarter: 2004Q3

REPORT INFORMATION
  Report Type: 
  Country: None (occurrence: None)
  Receive Date: 20040826
  Receipt Date: 20040705
  Transmission Date: 20050211
  Serious: Yes (Other)
  Sender: FDA-Public Use
  Company Number: PHFR2004GB02726

PATIENT
  Age: 40 Year
  Sex: Male

DRUGS (3)
  1. CLOZARIL [Suspect]
     Indication: SCHIZOPHRENIA
     Dosage: 275 MG/DAY
     Route: 048
     Dates: start: 19960219
  2. CLOZARIL [Suspect]
     Dosage: 400 MG/DAY
     Route: 048
  3. METFORMIN HCL [Suspect]
     Dosage: 500 MG, TID
     Route: 065

REACTIONS (3)
  - DIABETES MELLITUS NON-INSULIN-DEPENDENT [None]
  - DRUG INEFFECTIVE [None]
  - DRUG INTERACTION [None]
